FAERS Safety Report 11686665 (Version 3)
Quarter: 2016Q3

REPORT INFORMATION
  Report Type: Spontaneous
  Country: US (occurrence: US)
  Receive Date: 20151030
  Receipt Date: 20160715
  Transmission Date: 20161109
  Serious: Yes (Hospitalization)
  Sender: FDA-Public Use
  Company Number: US-PFIZER INC-2015365254

PATIENT
  Age: 65 Year
  Sex: Male

DRUGS (1)
  1. RAPAMUNE [Suspect]
     Active Substance: SIROLIMUS
     Dosage: 10 MG, 1X/DAY
     Dates: start: 2015

REACTIONS (6)
  - Cough [Recovering/Resolving]
  - Hypertension [Unknown]
  - Pneumonia [Recovered/Resolved]
  - Pain [Recovering/Resolving]
  - Cardiac disorder [Unknown]
  - Product use issue [Unknown]
